FAERS Safety Report 14735212 (Version 1)
Quarter: 2018Q2

REPORT INFORMATION
  Report Type: Spontaneous
  Country: US (occurrence: US)
  Receive Date: 20180403
  Receipt Date: 20180403
  Transmission Date: 20180711
  Serious: No
  Sender: FDA-Public Use
  Company Number: None

PATIENT
  Age: 45 Year
  Sex: Female

DRUGS (1)
  1. LETROZOLE TAB 2. 5MG [Suspect]
     Active Substance: LETROZOLE

REACTIONS (2)
  - Hot flush [None]
  - Weight increased [None]

NARRATIVE: CASE EVENT DATE: 20171001
